FAERS Safety Report 20867419 (Version 1)
Quarter: 2022Q2

REPORT INFORMATION
  Report Type: Spontaneous
  Country: CN (occurrence: CN)
  Receive Date: 20220524
  Receipt Date: 20220524
  Transmission Date: 20220721
  Serious: Yes (Other)
  Sender: FDA-Public Use
  Company Number: CN-PFIZER INC-202200727126

PATIENT
  Age: 51 Year
  Sex: Male
  Weight: 61 kg

DRUGS (5)
  1. EPIRUBICIN HYDROCHLORIDE [Suspect]
     Active Substance: EPIRUBICIN HYDROCHLORIDE
     Indication: Neoplasm
     Dosage: 40 MG, 1X/DAY
     Route: 042
     Dates: start: 20220424, end: 20220425
  2. DEXRAZOXANE [Suspect]
     Active Substance: DEXRAZOXANE
     Indication: Neoplasm
     Dosage: 0.5 G, 1X/DAY
     Route: 041
     Dates: start: 20220424, end: 20220425
  3. CYCLOPHOSPHAMIDE [Suspect]
     Active Substance: CYCLOPHOSPHAMIDE
     Indication: Neoplasm
     Dosage: 0.6 G, 1X/DAY
     Route: 042
     Dates: start: 20220424, end: 20220425
  4. VINORELBINE TARTRATE [Suspect]
     Active Substance: VINORELBINE TARTRATE
     Indication: Neoplasm
     Dosage: 30 MG, 1X/DAY
     Route: 042
     Dates: start: 20220424, end: 20220425
  5. DEXAMETHASONE SODIUM PHOSPHATE [Concomitant]
     Active Substance: DEXAMETHASONE SODIUM PHOSPHATE
     Indication: Neoplasm
     Dosage: 40 MG, 1X/DAY
     Route: 041
     Dates: start: 20220424, end: 20220425

REACTIONS (1)
  - Myelosuppression [Recovering/Resolving]

NARRATIVE: CASE EVENT DATE: 20220504
